FAERS Safety Report 19405736 (Version 4)
Quarter: 2021Q3

REPORT INFORMATION
  Report Type: Spontaneous
  Country: US (occurrence: US)
  Receive Date: 20210611
  Receipt Date: 20210728
  Transmission Date: 20211014
  Serious: No
  Sender: FDA-Public Use
  Company Number: US-DSJP-DSU-2021-117795

PATIENT
  Age: 70 Year
  Sex: Female

DRUGS (1)
  1. TURALIO [Suspect]
     Active Substance: PEXIDARTINIB HYDROCHLORIDE
     Indication: GIANT CELL TUMOUR OF TENDON SHEATH
     Dosage: BID
     Route: 048

REACTIONS (3)
  - Hypertension [Unknown]
  - Pelvic mass [Unknown]
  - Hair colour changes [Unknown]

NARRATIVE: CASE EVENT DATE: 2021
